FAERS Safety Report 4285690-9 (Version None)
Quarter: 2004Q1

REPORT INFORMATION
  Report Type: 
  Country: None (occurrence: None)
  Receive Date: 20040203
  Receipt Date: 20040123
  Transmission Date: 20041129
  Serious: Yes (Hospitalization)
  Sender: FDA-Public Use
  Company Number: NL-JNJFOC-20040104840

PATIENT
  Age: 26 Year
  Sex: Female

DRUGS (6)
  1. REMICADE [Suspect]
     Indication: RHEUMATOID ARTHRITIS
     Dosage: 3 MG/KG, INTRAVENOUS
     Route: 042
     Dates: start: 20030626, end: 20030807
  2. MOVICOX (MELOXICAM) [Concomitant]
  3. PREDNISONE [Concomitant]
  4. METHOTREXATE [Concomitant]
  5. FOLIC ACID [Concomitant]
  6. OMEPRAZOLE [Concomitant]

REACTIONS (1)
  - HIP ARTHROPLASTY [None]
